FAERS Safety Report 21882999 (Version 1)
Quarter: 2023Q1

REPORT INFORMATION
  Report Type: Report from Study
  Country: US (occurrence: US)
  Receive Date: 20230119
  Receipt Date: 20230119
  Transmission Date: 20230417
  Serious: No
  Sender: FDA-Public Use
  Company Number: US-002147023-NVSC2023US010407

PATIENT
  Age: 69 Year
  Sex: Female
  Weight: 79.365 kg

DRUGS (1)
  1. LEQVIO [Suspect]
     Active Substance: INCLISIRAN SODIUM
     Indication: Product used for unknown indication
     Dosage: UNK (284MG/1.5 ML, INITIAL 1ST DOSE, ANOTHER 3 MONTHS LATER, THEN ONCE EVERY 6 MONTHS)
     Route: 058
     Dates: start: 20221202

REACTIONS (2)
  - Herpes zoster [Recovered/Resolved]
  - Neuralgia [Recovered/Resolved]

NARRATIVE: CASE EVENT DATE: 20221202
